FAERS Safety Report 4721201-9 (Version None)
Quarter: 2005Q3

REPORT INFORMATION
  Report Type: 
  Country: None (occurrence: None)
  Receive Date: 20050722
  Receipt Date: 20050718
  Transmission Date: 20060218
  Serious: Yes (Death)
  Sender: FDA-Public Use
  Company Number: AU-BOEHRINGER INGELHEIM PHARMACEUTICALS, INC.-2005-BP-12250AU

PATIENT
  Sex: Male

DRUGS (1)
  1. MOBIC [Suspect]
     Indication: ADVERSE EVENT
     Route: 048

REACTIONS (1)
  - DEATH [None]
